FAERS Safety Report 8873997 (Version 2)
Quarter: 2012Q4

REPORT INFORMATION
  Report Type: 
  Country: US (occurrence: US)
  Receive Date: 20121030
  Receipt Date: 20121211
  Transmission Date: 20130627
  Serious: Yes (Other)
  Sender: FDA-Public Use
  Company Number: US-PFIZER INC-2012267527

PATIENT
  Age: 64 Year
  Sex: Female
  Weight: 68.03 kg

DRUGS (4)
  1. NEURONTIN [Suspect]
     Indication: NERVE PAIN
     Dosage: 600 mg, 3x/day
     Route: 048
  2. LIPITOR [Suspect]
     Indication: HIGH CHOLESTEROL
     Dosage: 10 mg, 1x/day
     Route: 048
  3. CHANTIX [Suspect]
     Indication: SMOKING CESSATION THERAPY
     Dosage: 0.5 mg, 1x/day
     Route: 048
  4. CHANTIX [Suspect]
     Dosage: UNK
     Route: 048

REACTIONS (1)
  - Heart valve incompetence [Unknown]
